FAERS Safety Report 24673449 (Version 2)
Quarter: 2025Q3

REPORT INFORMATION
  Report Type: Report from Study
  Country: US (occurrence: US)
  Receive Date: 20241128
  Receipt Date: 20250716
  Transmission Date: 20251020
  Serious: Yes (Other)
  Sender: ASTELLAS
  Company Number: US-ASTELLAS-2024-AER-019833

PATIENT
  Age: 77 Year
  Sex: Male

DRUGS (2)
  1. ENZALUTAMIDE [Suspect]
     Active Substance: ENZALUTAMIDE
     Indication: Prostate cancer stage IV
     Route: 048
     Dates: start: 20240827, end: 20250616
  2. LUPRON [Concomitant]
     Active Substance: LEUPROLIDE ACETATE
     Indication: Prostate cancer
     Route: 065
     Dates: end: 20250616

REACTIONS (5)
  - Osteoarthritis [Unknown]
  - Musculoskeletal discomfort [Unknown]
  - Condition aggravated [Unknown]
  - Muscle discomfort [Unknown]
  - Condition aggravated [Unknown]

NARRATIVE: CASE EVENT DATE: 20241212
